FAERS Safety Report 5781718-5 (Version None)
Quarter: 2008Q2

REPORT INFORMATION
  Report Type: 
  Country: None (occurrence: None)
  Receive Date: 20080623
  Receipt Date: 20080610
  Transmission Date: 20081010
  Serious: Yes (Hospitalization, Other)
  Sender: FDA-Public Use
  Company Number: JP-ABBOTT-08P-087-0454412-00

PATIENT
  Sex: Female
  Weight: 44 kg

DRUGS (10)
  1. SEVOFLURANE [Suspect]
     Indication: GENERAL ANAESTHESIA
     Route: 055
     Dates: start: 20080528, end: 20080528
  2. ROCURONIUM BROMIDE [Concomitant]
     Indication: GENERAL ANAESTHESIA
     Route: 042
     Dates: start: 20080528, end: 20080528
  3. ROCURONIUM BROMIDE [Concomitant]
     Route: 042
     Dates: start: 20080528, end: 20080528
  4. ROCURONIUM BROMIDE [Concomitant]
     Route: 042
     Dates: start: 20080528, end: 20080528
  5. FENTANYL CITRATE [Concomitant]
     Indication: GENERAL ANAESTHESIA
     Route: 042
     Dates: start: 20080528, end: 20080528
  6. PROPOFOL [Concomitant]
     Indication: GENERAL ANAESTHESIA
     Route: 042
     Dates: start: 20080528, end: 20080528
  7. METHOXAMINE HYDROCHLORIDE [Concomitant]
     Indication: GENERAL ANAESTHESIA
     Route: 042
     Dates: start: 20080528, end: 20080528
  8. ATROPINE SULFATE [Concomitant]
     Indication: GENERAL ANAESTHESIA
     Route: 042
     Dates: start: 20080528, end: 20080528
  9. DOPAMINE HYDROCHLORIDE [Concomitant]
     Indication: GENERAL ANAESTHESIA
     Route: 042
     Dates: start: 20080528, end: 20080528
  10. NICORANDIL [Concomitant]
     Indication: GENERAL ANAESTHESIA
     Route: 042
     Dates: start: 20080528, end: 20080528

REACTIONS (9)
  - ALANINE AMINOTRANSFERASE INCREASED [None]
  - ASPARTATE AMINOTRANSFERASE INCREASED [None]
  - CEREBRAL INFARCTION [None]
  - COAGULOPATHY [None]
  - DYSARTHRIA [None]
  - HEPATIC FUNCTION ABNORMAL [None]
  - HYPOGLYCAEMIA [None]
  - NAUSEA [None]
  - VOMITING [None]
